FAERS Safety Report 11740040 (Version 2)
Quarter: 2015Q4

REPORT INFORMATION
  Report Type: Spontaneous
  Country: US (occurrence: US)
  Receive Date: 20151110
  Receipt Date: 20151120
  Transmission Date: 20160304
  Serious: No
  Sender: FDA-Public Use
  Company Number: US-ELI_LILLY_AND_COMPANY-US201206001959

PATIENT
  Age: 75 Year
  Sex: Female

DRUGS (2)
  1. FORTEO [Suspect]
     Active Substance: TERIPARATIDE
     Dosage: 20 UG, QD
     Route: 065
  2. FORTEO [Suspect]
     Active Substance: TERIPARATIDE
     Indication: OSTEOPOROSIS
     Dosage: 20 UG, QD
     Dates: start: 20120525

REACTIONS (7)
  - Injection site warmth [Unknown]
  - Malaise [Unknown]
  - Feeling abnormal [Unknown]
  - Diarrhoea [Unknown]
  - Discomfort [Unknown]
  - Adverse drug reaction [Unknown]
  - Injection site erythema [Unknown]

NARRATIVE: CASE EVENT DATE: 20120525
